FAERS Safety Report 9432093 (Version 1)
Quarter: 2013Q3

REPORT INFORMATION
  Report Type: Spontaneous
  Country: US (occurrence: US)
  Receive Date: 20130731
  Receipt Date: 20130731
  Transmission Date: 20140515
  Serious: No
  Sender: FDA-Public Use
  Company Number: US-PFIZER INC-2013218036

PATIENT
  Age: 61 Year
  Sex: Male
  Weight: 88.43 kg

DRUGS (5)
  1. LEVOXYL [Suspect]
     Indication: HYPERTHYROIDISM
     Dosage: 20 UG, 1X/DAY
  2. LEVOXYL [Suspect]
     Dosage: 50 UG, 1X/DAY
  3. LEVOTHYROXINE SODIUM [Suspect]
     Indication: HYPERTHYROIDISM
     Dosage: UNK
  4. SYNTHROID [Suspect]
     Indication: HYPERTHYROIDISM
     Dosage: UNK
  5. CRESTOR [Concomitant]
     Indication: BLOOD CHOLESTEROL INCREASED
     Dosage: 20 MG, 1X/DAY

REACTIONS (10)
  - Product odour abnormal [Unknown]
  - Immune system disorder [Unknown]
  - Nasopharyngitis [Unknown]
  - Somnolence [Unknown]
  - Impaired driving ability [Unknown]
  - Fatigue [Unknown]
  - Abdominal discomfort [Unknown]
  - Nasal congestion [Unknown]
  - Sneezing [Unknown]
  - Drug intolerance [Unknown]
